FAERS Safety Report 6379715-4 (Version None)
Quarter: 2009Q3

REPORT INFORMATION
  Report Type: 
  Country: None (occurrence: None)
  Receive Date: 20090928
  Receipt Date: 20090916
  Transmission Date: 20100115
  Serious: Yes (Other)
  Sender: FDA-Public Use
  Company Number: BR-AVENTIS-200819452GDDC

PATIENT
  Age: 75 Year
  Sex: Female
  Weight: 64 kg

DRUGS (12)
  1. LANTUS [Suspect]
     Route: 058
     Dates: start: 20040101
  2. LANTUS [Suspect]
     Route: 058
     Dates: start: 20040101
  3. OPTIPEN (INSULIN PUMP) [Suspect]
     Dates: start: 20040101, end: 20080922
  4. OPTIPEN (INSULIN PUMP) [Suspect]
     Dates: start: 20080923, end: 20090917
  5. AUTOPEN 24 [Suspect]
     Dates: start: 20090918
  6. HUMALOG [Concomitant]
     Route: 058
     Dates: start: 20060101
  7. METFORMIN HYDROCHLORIDE [Concomitant]
     Dosage: DOSE: 1 TAB AFTER MEALS
     Route: 048
  8. DRUG USED IN DIABETES [Concomitant]
     Route: 048
     Dates: start: 20080801
  9. PURAN T4 [Concomitant]
     Indication: THYROID DISORDER
     Route: 048
  10. LOSARTAN [Concomitant]
     Route: 048
  11. HYGROTON [Concomitant]
     Route: 048
  12. NOVORAPID [Concomitant]
     Dosage: DOSE: ACCORDING TO GLYCEMIA
     Route: 058

REACTIONS (10)
  - CATARACT [None]
  - COLD SWEAT [None]
  - DIZZINESS [None]
  - FEELING ABNORMAL [None]
  - HYPERGLYCAEMIA [None]
  - HYPOGLYCAEMIA [None]
  - PRESYNCOPE [None]
  - PRODUCT QUALITY ISSUE [None]
  - SOMNOLENCE [None]
  - VISUAL IMPAIRMENT [None]
